FAERS Safety Report 10188975 (Version 1)
Quarter: 2014Q2

REPORT INFORMATION
  Report Type: Spontaneous
  Country: GB (occurrence: None)
  Receive Date: 20140520
  Receipt Date: 20140520
  Transmission Date: 20141212
  Serious: Yes (Other)
  Sender: FDA-Public Use
  Company Number: AUR-APL-2014-05686

PATIENT
  Age: 46 Year
  Sex: Male

DRUGS (4)
  1. CITALOPRAM (CITALOPRAM) [Suspect]
     Indication: DEPRESSION
  2. MIRTAZAPINE (MIRTAZAPINE) [Suspect]
     Indication: DEPRESSION
  3. TERBINAFINE (TERBINAFINE) [Suspect]
     Indication: TINEA INFECTION
     Dates: start: 2013, end: 2013
  4. SEROXAT [Suspect]
     Indication: DEPRESSION

REACTIONS (7)
  - Somatic delusion [None]
  - Sensation of foreign body [None]
  - Shock [None]
  - Tremor [None]
  - Speech disorder [None]
  - Skin disorder [None]
  - Cyst [None]
